FAERS Safety Report 6284468-4 (Version None)
Quarter: 2009Q3

REPORT INFORMATION
  Report Type: 
  Country: None (occurrence: None)
  Receive Date: 20090722
  Receipt Date: 20090714
  Transmission Date: 20100115
  Serious: Yes (Hospitalization)
  Sender: FDA-Public Use
  Company Number: ADR 20067493-007

PATIENT
  Age: 22 Year
  Sex: Male

DRUGS (7)
  1. PRAVASTATIN SODIUM        (MFR: UNKNOWN) [Suspect]
     Dosage: 40 MG PER DAY, ORAL
     Route: 048
  2. CYCLOSEORIN A [Concomitant]
  3. ASPIRIN [Concomitant]
  4. AZATHIOPRINE 75 MG [Concomitant]
  5. FUROSEMIDE [Concomitant]
  6. PREDNISOLONE [Concomitant]
  7. RAMIPRIL [Concomitant]

REACTIONS (2)
  - DRUG INTERACTION [None]
  - RHABDOMYOLYSIS [None]
